FAERS Safety Report 21265228 (Version 1)
Quarter: 2022Q3

REPORT INFORMATION
  Report Type: Spontaneous
  Country: CN (occurrence: CN)
  Receive Date: 20220829
  Receipt Date: 20220829
  Transmission Date: 20221027
  Serious: Yes (Other)
  Sender: FDA-Public Use
  Company Number: None

PATIENT
  Age: 33 Year
  Sex: Male
  Weight: 85 kg

DRUGS (5)
  1. IFOSFAMIDE [Suspect]
     Active Substance: IFOSFAMIDE
     Indication: Lymphoma
     Dosage: 3G, QD, D1-4
     Route: 041
     Dates: start: 20220423, end: 20220426
  2. MESNA [Suspect]
     Active Substance: MESNA
     Indication: Lymphoma
     Dosage: 0.6 G, TID, D1-4
     Route: 041
     Dates: start: 20220423, end: 20220426
  3. GEMCITABINE HYDROCHLORIDE [Suspect]
     Active Substance: GEMCITABINE HYDROCHLORIDE
     Indication: Lymphoma
     Dosage: 1.2 G, QD, DAY 1
     Route: 041
     Dates: start: 20220423, end: 20220423
  4. GEMCITABINE HYDROCHLORIDE [Suspect]
     Active Substance: GEMCITABINE HYDROCHLORIDE
     Dosage: 1.2 G, QD, DAY 4
     Route: 041
     Dates: start: 20220426, end: 20220426
  5. VINORELBINE TARTRATE [Suspect]
     Active Substance: VINORELBINE TARTRATE
     Indication: Lymphoma
     Dosage: 40 MG, QD, D1
     Route: 041
     Dates: start: 20220423, end: 20220423

REACTIONS (2)
  - Myelosuppression [Unknown]
  - White blood cell count decreased [Recovering/Resolving]

NARRATIVE: CASE EVENT DATE: 20220428
